FAERS Safety Report 10160281 (Version 1)
Quarter: 2014Q2

REPORT INFORMATION
  Report Type: Spontaneous
  Country: US (occurrence: US)
  Receive Date: 20140508
  Receipt Date: 20140508
  Transmission Date: 20141212
  Serious: Yes (Other)
  Sender: FDA-Public Use
  Company Number: US-ASTRAZENECA-2014SE29985

PATIENT
  Sex: Male

DRUGS (2)
  1. BRILINTA [Suspect]
     Indication: THROMBOSIS IN DEVICE
     Dosage: UNKNOWN BID
     Route: 048
     Dates: start: 20140404
  2. BRILINTA [Suspect]
     Indication: ISCHAEMIC HEART DISEASE PROPHYLAXIS
     Dosage: UNKNOWN BID
     Route: 048
     Dates: start: 20140404

REACTIONS (1)
  - Thrombosis in device [Unknown]
